FAERS Safety Report 6524399-5 (Version None)
Quarter: 2010Q1

REPORT INFORMATION
  Report Type: 
  Country: None (occurrence: None)
  Receive Date: 20100101
  Receipt Date: 20091221
  Transmission Date: 20100710
  Serious: Yes (Hospitalization)
  Sender: FDA-Public Use
  Company Number: GB-RANBAXY-2007RR-08541

PATIENT

DRUGS (2)
  1. PARACETAMOL [Suspect]
  2. DENZAPINE [Suspect]
     Indication: SCHIZOPHRENIA
     Dates: start: 20070504, end: 20070605

REACTIONS (1)
  - INTENTIONAL OVERDOSE [None]
